FAERS Safety Report 19497611 (Version 1)
Quarter: 2021Q3

REPORT INFORMATION
  Report Type: Spontaneous
  Country: US (occurrence: US)
  Receive Date: 20210706
  Receipt Date: 20210706
  Transmission Date: 20211014
  Serious: Yes (Life-Threatening, Hospitalization, Other)
  Sender: FDA-Public Use
  Company Number: US-CIPLA LTD.-2021US03085

PATIENT

DRUGS (1)
  1. WARFARIN [Suspect]
     Active Substance: WARFARIN
     Indication: ANTICOAGULANT THERAPY
     Dosage: UNK
     Route: 065

REACTIONS (15)
  - Subcapsular renal haematoma [Unknown]
  - Death [None]
  - Acute respiratory failure [Recovered/Resolved]
  - Anticoagulation drug level above therapeutic [Unknown]
  - Rib fracture [Unknown]
  - Kidney rupture [Unknown]
  - Stag horn calculus [Unknown]
  - Pulseless electrical activity [Unknown]
  - Haematuria [Unknown]
  - Haemothorax [Unknown]
  - Hypotension [Unknown]
  - Sepsis [Unknown]
  - Urinary tract infection [Unknown]
  - Splenic rupture [Unknown]
  - Pneumonia aspiration [Unknown]
